FAERS Safety Report 9048567 (Version 1)
Quarter: 2013Q1

REPORT INFORMATION
  Report Type: Spontaneous
  Country: US (occurrence: None)
  Receive Date: 20130116
  Receipt Date: 20130116
  Transmission Date: 20140127
  Serious: Yes (Other)
  Sender: FDA-Public Use
  Company Number: A1007957A

PATIENT
  Sex: Male

DRUGS (1)
  1. METHYLCELLULOSE (FORMULATION UNKNOWN) (METHYLCELLULOSE) [Suspect]
     Route: 048

REACTIONS (5)
  - Constipation [None]
  - Intestinal obstruction [None]
  - Drug administration error [None]
  - Bowel movement irregularity [None]
  - Change of bowel habit [None]
